FAERS Safety Report 9111651 (Version 2)
Quarter: 2014Q1

REPORT INFORMATION
  Report Type: Spontaneous
  Country: US (occurrence: US)
  Receive Date: 20130219
  Receipt Date: 20140213
  Transmission Date: 20141002
  Serious: No
  Sender: FDA-Public Use
  Company Number: US-BRISTOL-MYERS SQUIBB COMPANY-16586729

PATIENT
  Age: 44 Year
  Sex: Male

DRUGS (3)
  1. ORENCIA FOR INJ 250 MG/VIAL [Suspect]
     Indication: RHEUMATOID ARTHRITIS
     Dosage: 1DF=INFUSE 10MG/KG IN 100ML NS OVER 30MIN
     Route: 042
     Dates: start: 20120130
  2. LUXIQ [Concomitant]
     Dosage: FORMULATION-LUXIQ 0.12% EXTERNAL FOAM?0.1% EXTERNAL CREAM: FROM 06-JUL-2012
     Route: 061
     Dates: start: 20070913
  3. SOLU-CORTEF [Concomitant]
     Dosage: 100 MG INJECTION SOLUTION RECONSTITUTED?SVIP PRIOR TO ABATACEPT TREATMENT.
     Dates: start: 20080918

REACTIONS (1)
  - Hypersomnia [Unknown]
